FAERS Safety Report 12156452 (Version 2)
Quarter: 2016Q2

REPORT INFORMATION
  Report Type: Spontaneous
  Country: US (occurrence: US)
  Receive Date: 20160307
  Receipt Date: 20160401
  Transmission Date: 20160815
  Serious: No
  Sender: FDA-Public Use
  Company Number: US-PFIZER INC-2016122193

PATIENT
  Age: 56 Year
  Sex: Female
  Weight: 77.11 kg

DRUGS (3)
  1. CELECOXIB. [Suspect]
     Active Substance: CELECOXIB
     Indication: OSTEOARTHRITIS
     Dosage: 200 MG, 2X/DAY
     Route: 048
  2. GLIMEPIRIDE. [Concomitant]
     Active Substance: GLIMEPIRIDE
     Indication: DIABETES MELLITUS
     Dosage: 4 MG, 2X/DAY
  3. ATENOLOL. [Concomitant]
     Active Substance: ATENOLOL
     Indication: HYPERTENSION
     Dosage: 100 MG, 1X/DAY

REACTIONS (2)
  - Drug ineffective [Unknown]
  - Pain [Unknown]
